FAERS Safety Report 5921169-3 (Version None)
Quarter: 2008Q4

REPORT INFORMATION
  Report Type: 
  Country: None (occurrence: None)
  Receive Date: 20081016
  Receipt Date: 20081010
  Transmission Date: 20090506
  Serious: Yes (Other)
  Sender: FDA-Public Use
  Company Number: FR-GENENTECH-269672

PATIENT
  Age: 50 Year
  Sex: Male

DRUGS (3)
  1. RAPTIVA [Suspect]
     Indication: PSORIASIS
     Dosage: 1 MG/KG, 1/WEEK
     Dates: start: 20051201, end: 20060501
  2. REMICADE [Suspect]
     Indication: PSORIASIS
     Dosage: 5 MG/KG, UNK
     Dates: start: 20060601
  3. REMICADE [Suspect]
     Dosage: 6 MG/KG, Q6W
     Dates: start: 20060801, end: 20070801

REACTIONS (3)
  - DRUG INEFFECTIVE [None]
  - EXTRANODAL MARGINAL ZONE B-CELL LYMPHOMA (MALT TYPE) [None]
  - GASTRIC ULCER [None]
